FAERS Safety Report 13980670 (Version 1)
Quarter: 2017Q3

REPORT INFORMATION
  Report Type: Spontaneous
  Country: AU (occurrence: AT)
  Receive Date: 20170918
  Receipt Date: 20170918
  Transmission Date: 20171128
  Serious: Yes (Death, Life-Threatening, Hospitalization)
  Sender: FDA-Public Use
  Company Number: AT-ORION CORPORATION ORION PHARMA-ENTC2017-0432

PATIENT
  Age: 73 Year
  Sex: Male

DRUGS (23)
  1. CIPRALEX [Suspect]
     Active Substance: ESCITALOPRAM OXALATE
     Dosage: STRENGTH: 10 MG; 2-0-0
     Route: 065
     Dates: start: 20160125, end: 20160130
  2. STALEVO [Suspect]
     Active Substance: CARBIDOPA\ENTACAPONE\LEVODOPA
     Dosage: STRENGTH: 100/25/200; 1-1-0
     Route: 065
     Dates: start: 20160212
  3. LASIX [Concomitant]
     Active Substance: FUROSEMIDE
     Route: 065
     Dates: start: 20160129
  4. SPIROBENE [Concomitant]
     Active Substance: SPIRONOLACTONE
     Dosage: 0-0.5-0
     Route: 065
     Dates: start: 20160129
  5. AQUAPHORIL [Concomitant]
     Active Substance: XIPAMIDE
     Dosage: 0.5-0-0
     Route: 065
  6. PANTOLOC [Concomitant]
     Active Substance: PANTOPRAZOLE SODIUM
     Dosage: 2-0-0
     Route: 065
  7. ISOPHANE INSULIN [Concomitant]
     Active Substance: INSULIN NOS
     Dosage: 61E-0-0
     Route: 065
  8. STALEVO [Suspect]
     Active Substance: CARBIDOPA\ENTACAPONE\LEVODOPA
     Dosage: STRENGTH: 50/12.5/200 MG
     Route: 065
     Dates: start: 20160212
  9. CIPRALEX [Suspect]
     Active Substance: ESCITALOPRAM OXALATE
     Dosage: STRENGTH: 10 MG; 1-0-0
     Route: 065
     Dates: start: 20160212
  10. ELOMEL [Concomitant]
     Dosage: 1XTGL
     Route: 065
     Dates: start: 20160129, end: 20160130
  11. MADOPAR [Suspect]
     Active Substance: BENSERAZIDE HYDROCHLORIDE\LEVODOPA
     Dosage: STRENGTH: 50/12.5 MG; 1-1-1
     Route: 065
     Dates: start: 20161025
  12. LOVENOX [Concomitant]
     Active Substance: ENOXAPARIN SODIUM
     Dosage: 1XTGL
     Route: 065
     Dates: start: 20161025
  13. THROMBO ASS [Concomitant]
     Active Substance: ASPIRIN
     Dosage: STRENGTH: 100 MG; 0-1-0
     Route: 065
     Dates: start: 20160129
  14. CEFTRIAXONE SODIUM. [Concomitant]
     Active Substance: CEFTRIAXONE SODIUM
     Dosage: 2 G IN 200 ML, 1XTGL
     Route: 065
  15. AZILECT [Suspect]
     Active Substance: RASAGILINE MESYLATE
     Dosage: STRENGTH: 1 MG; 1-0-0
     Route: 065
     Dates: start: 20160125, end: 20160130
  16. TORASEMIDE [Concomitant]
     Active Substance: TORSEMIDE
     Dosage: 1-0-1
     Route: 065
  17. STALEVO [Suspect]
     Active Substance: CARBIDOPA\ENTACAPONE\LEVODOPA
     Dosage: STRENGTH: 100/25/200; 1-0-0
     Route: 065
     Dates: start: 20160125, end: 20160128
  18. TRITTICO [Suspect]
     Active Substance: TRAZODONE HYDROCHLORIDE
     Dosage: STRENGTH: 150 MG; 0-0-0.5
     Route: 065
     Dates: start: 20160125, end: 20160130
  19. DANCOR [Concomitant]
     Active Substance: NICORANDIL
     Dosage: 1-0-1
     Route: 065
  20. SEROQUEL [Suspect]
     Active Substance: QUETIAPINE FUMARATE
     Dosage: STRENGTH: 25 MG
     Route: 065
     Dates: start: 20160125
  21. SEDACORON [Concomitant]
     Active Substance: AMIODARONE HYDROCHLORIDE
     Dosage: STRENGTH: 200 MG; 0.5-0-0
     Route: 065
  22. OPTINEM [Concomitant]
     Active Substance: MEROPENEM
     Route: 065
     Dates: start: 20160129, end: 20160210
  23. EPOETIN THETA [Concomitant]
     Active Substance: ERYTHROPOIETIN
     Dosage: 1X/WOCHE
     Route: 065

REACTIONS (10)
  - Renal impairment [Fatal]
  - Dehydration [Unknown]
  - Pneumonia [Unknown]
  - Condition aggravated [Fatal]
  - Oedema peripheral [Unknown]
  - Weight decreased [Unknown]
  - Atrial fibrillation [Fatal]
  - Cardiac failure [Fatal]
  - Fatigue [Unknown]
  - Coronary artery disease [Fatal]

NARRATIVE: CASE EVENT DATE: 20160125
